FAERS Safety Report 5064191-4 (Version None)
Quarter: 2006Q3

REPORT INFORMATION
  Report Type: 
  Country: None (occurrence: None)
  Receive Date: 20060728
  Receipt Date: 20050713
  Transmission Date: 20061208
  Serious: No
  Sender: FDA-Public Use
  Company Number: US-GLAXOSMITHKLINE-A0566127A

PATIENT
  Sex: Female

DRUGS (5)
  1. ZANTAC [Suspect]
     Dosage: 150MG TWICE PER DAY
     Route: 048
  2. SYNTHROID [Concomitant]
  3. XANAX [Concomitant]
  4. ATROVENT [Concomitant]
  5. AZMACORT [Concomitant]

REACTIONS (1)
  - VISION BLURRED [None]
